FAERS Safety Report 8872075 (Version 1)
Quarter: 2012Q4

REPORT INFORMATION
  Report Type: 
  Country: US (occurrence: US)
  Receive Date: 20121023
  Receipt Date: 20121023
  Transmission Date: 20130627
  Serious: No
  Sender: FDA-Public Use
  Company Number: US-ASTELLAS-2012US005311

PATIENT
  Age: 6 Year
  Sex: Male

DRUGS (2)
  1. PROGRAF [Suspect]
     Indication: BONE MARROW TRANSPLANT
     Dosage: UNK
     Route: 048
  2. PROGRAF [Suspect]
     Dosage: 0.5 mg, bid
     Route: 048
     Dates: end: 201205

REACTIONS (2)
  - Off label use [Unknown]
  - Immunosuppressant drug level increased [Not Recovered/Not Resolved]
